FAERS Safety Report 9225788 (Version 1)
Quarter: 2013Q2

REPORT INFORMATION
  Report Type: Spontaneous
  Country: US (occurrence: None)
  Receive Date: 20130410
  Receipt Date: 20130410
  Transmission Date: 20140414
  Serious: Yes (Hospitalization)
  Sender: FDA-Public Use
  Company Number: None

PATIENT
  Age: 54 Year
  Sex: Male
  Weight: 79.5 kg

DRUGS (1)
  1. ASA [Suspect]
     Dosage: CHRONIC?81 MC
     Route: 048

REACTIONS (5)
  - Duodenal ulcer [None]
  - Upper gastrointestinal haemorrhage [None]
  - Anaemia [None]
  - Gastric ulcer [None]
  - Gastric ulcer [None]
